FAERS Safety Report 13306221 (Version 2)
Quarter: 2017Q1

REPORT INFORMATION
  Report Type: Spontaneous
  Country: US (occurrence: US)
  Receive Date: 20170308
  Receipt Date: 20170320
  Transmission Date: 20170428
  Serious: Yes (Other)
  Sender: FDA-Public Use
  Company Number: US-JNJFOC-20150703024

PATIENT
  Age: 13 Year
  Sex: Male

DRUGS (1)
  1. RISPERDAL [Suspect]
     Active Substance: RISPERIDONE
     Indication: BIPOLAR DISORDER
     Route: 048
     Dates: start: 200402, end: 200405

REACTIONS (4)
  - Hyperprolactinaemia [Unknown]
  - Obesity [Unknown]
  - Gynaecomastia [Unknown]
  - Drug ineffective [Unknown]

NARRATIVE: CASE EVENT DATE: 200404
